FAERS Safety Report 8608578-9 (Version None)
Quarter: 2012Q3

REPORT INFORMATION
  Report Type: 
  Country: None (occurrence: None)
  Receive Date: 20120809
  Receipt Date: 20120809
  Transmission Date: 20120928
  Serious: Yes (Other)
  Sender: FDA-Public Use
  Company Number: None

PATIENT
  Age: 49 Year
  Sex: Female
  Weight: 72.5755 kg

DRUGS (1)
  1. OXYBUTYNIN [Suspect]
     Indication: URINARY INCONTINENCE
     Dates: start: 20120703, end: 20120710

REACTIONS (7)
  - PAIN [None]
  - SWELLING [None]
  - DRY EYE [None]
  - OEDEMA PERIPHERAL [None]
  - INSOMNIA [None]
  - EYE DISORDER [None]
  - FEELING ABNORMAL [None]
